FAERS Safety Report 24397488 (Version 2)
Quarter: 2025Q3

REPORT INFORMATION
  Report Type: Report from Study
  Country: US (occurrence: US)
  Receive Date: 20241004
  Receipt Date: 20250803
  Transmission Date: 20251021
  Serious: Yes (Other)
  Sender: ALEXION PHARMACEUTICALS
  Company Number: US-AstraZeneca-CH-00698236A

PATIENT
  Sex: Female

DRUGS (2)
  1. STRENSIQ [Suspect]
     Active Substance: ASFOTASE ALFA
     Indication: Hypophosphatasia
     Route: 065
  2. METHOTREXATE [Suspect]
     Active Substance: METHOTREXATE
     Indication: Product used for unknown indication
     Route: 065

REACTIONS (10)
  - Psoriatic arthropathy [Unknown]
  - Fibromyalgia [Unknown]
  - Inflammation [Unknown]
  - Polyp [Unknown]
  - Renal neoplasm [Unknown]
  - Blood urine [Unknown]
  - Exostosis [Unknown]
  - Headache [Recovered/Resolved]
  - Blood cholesterol increased [Unknown]
  - Myalgia [Unknown]
